FAERS Safety Report 10544357 (Version 1)
Quarter: 2014Q4

REPORT INFORMATION
  Report Type: Spontaneous
  Country: GB (occurrence: None)
  Receive Date: 20141023
  Receipt Date: 20141023
  Transmission Date: 20150529
  Serious: Yes (Other)
  Sender: FDA-Public Use
  Company Number: 2014GB0444

PATIENT
  Age: 23 Year
  Sex: Female

DRUGS (2)
  1. KINERET [Suspect]
     Active Substance: ANAKINRA
     Indication: HISTIOCYTOSIS HAEMATOPHAGIC
     Dates: start: 201405, end: 20140503
  2. PREDNISOLONE (PREDNISOLONE) [Concomitant]
     Active Substance: PREDNISOLONE

REACTIONS (1)
  - Polycythaemia [None]

NARRATIVE: CASE EVENT DATE: 20140521
